FAERS Safety Report 18878248 (Version 1)
Quarter: 2021Q1

REPORT INFORMATION
  Report Type: Spontaneous
  Country: US (occurrence: US)
  Receive Date: 20210211
  Receipt Date: 20210211
  Transmission Date: 20210420
  Serious: Yes (Life-Threatening, Hospitalization, Other)
  Sender: FDA-Public Use
  Company Number: US-GRANULES-US-2021GRALIT00123

PATIENT
  Age: 46 Year
  Sex: Male
  Weight: 84 kg

DRUGS (3)
  1. ACETAMINOPHEN. [Suspect]
     Active Substance: ACETAMINOPHEN
     Indication: PRODUCT USED FOR UNKNOWN INDICATION
     Dosage: 200 PILLS OF 500 MG
     Route: 048
  2. N?ACETYLCYSTEINE [Interacting]
     Active Substance: ACETYLCYSTEINE
     Dosage: 6.25 MG/KG/H FOR 16 HOURS
     Route: 065
  3. N?ACETYLCYSTEINE [Interacting]
     Active Substance: ACETYLCYSTEINE
     Dosage: FOLLOWED BY 50 MG/KG
     Route: 065

REACTIONS (16)
  - Albuminuria [Recovered/Resolved]
  - Hypotension [Recovered/Resolved]
  - Toxicity to various agents [Recovered/Resolved]
  - Drug level increased [Recovered/Resolved]
  - Proteinuria [Recovered/Resolved]
  - Coagulopathy [Recovered/Resolved]
  - Hyperglycaemia [Recovered/Resolved]
  - Aspartate aminotransferase increased [Recovered/Resolved]
  - Reaction to excipient [Recovered/Resolved]
  - Intentional overdose [Unknown]
  - Blood creatinine decreased [Recovered/Resolved]
  - Lactic acidosis [Recovered/Resolved]
  - Polyuria [Recovered/Resolved]
  - Alanine aminotransferase increased [Recovered/Resolved]
  - Glycosuria [Recovered/Resolved]
  - Depressed level of consciousness [Recovered/Resolved]
